FAERS Safety Report 12594869 (Version 2)
Quarter: 2016Q3

REPORT INFORMATION
  Report Type: Spontaneous
  Country: DE (occurrence: DE)
  Receive Date: 20160726
  Receipt Date: 20160726
  Transmission Date: 20161109
  Serious: Yes (Other)
  Sender: FDA-Public Use
  Company Number: GXKR2016DE003526

PATIENT

DRUGS (3)
  1. PARACETAMOL [Concomitant]
     Active Substance: ACETAMINOPHEN
     Indication: RESPIRATORY TRACT INFECTION
     Dosage: 500 MG, TID
     Route: 064
  2. CICLOSPORIN [Suspect]
     Active Substance: CYCLOSPORINE
     Indication: SYSTEMIC SCLERODERMA
     Dosage: 75 MG, BID
     Route: 064
     Dates: start: 20150701, end: 20160408
  3. FOLIC ACID. [Concomitant]
     Active Substance: FOLIC ACID
     Indication: PROPHYLAXIS OF NEURAL TUBE DEFECT
     Dosage: 0.8 MG, QD
     Route: 064
     Dates: start: 20150701, end: 20160408

REACTIONS (3)
  - Congenital choroid plexus cyst [Not Recovered/Not Resolved]
  - Atrial septal defect [Recovered/Resolved]
  - Neonatal pneumonia [Recovered/Resolved]

NARRATIVE: CASE EVENT DATE: 20160408
